FAERS Safety Report 23627104 (Version 2)
Quarter: 2024Q2

REPORT INFORMATION
  Report Type: Report from Study
  Country: US (occurrence: US)
  Receive Date: 20240313
  Receipt Date: 20240606
  Transmission Date: 20240716
  Serious: No
  Sender: FDA-Public Use
  Company Number: US-SPRINGWORKS THERAPEUTICS-SW-001267

PATIENT
  Sex: Male

DRUGS (1)
  1. NIROGACESTAT [Suspect]
     Active Substance: NIROGACESTAT
     Indication: Desmoid tumour
     Dosage: 150 MILLIGRAM, BID
     Route: 048
     Dates: start: 20240127

REACTIONS (8)
  - Glossitis [Unknown]
  - Increased viscosity of upper respiratory secretion [Unknown]
  - Anxiety [Unknown]
  - Sinusitis [Recovering/Resolving]
  - Epistaxis [Unknown]
  - Diarrhoea [Unknown]
  - Dyschezia [Unknown]
  - Product taste abnormal [Unknown]
